FAERS Safety Report 4472793-9 (Version None)
Quarter: 2004Q4

REPORT INFORMATION
  Report Type: 
  Country: None (occurrence: None)
  Receive Date: 20041013
  Receipt Date: 20041004
  Transmission Date: 20050328
  Serious: Yes (Death, Hospitalization)
  Sender: FDA-Public Use
  Company Number: US-BRISTOL-MYERS SQUIBB COMPANY-12721304

PATIENT
  Sex: Male
  Weight: 159 kg

DRUGS (1)
  1. COUMADIN [Suspect]
     Dates: start: 19971101

REACTIONS (1)
  - DEATH [None]
